FAERS Safety Report 7067530-8 (Version None)
Quarter: 2010Q4

REPORT INFORMATION
  Report Type: 
  Country: None (occurrence: None)
  Receive Date: 20101019
  Receipt Date: 20101013
  Transmission Date: 20110411
  Serious: Yes (Death, Other)
  Sender: FDA-Public Use
  Company Number: 2010SP045606

PATIENT
  Sex: Female

DRUGS (2)
  1. PEG-INTRON [Suspect]
     Indication: HEPATITIS C
     Dates: start: 20100814
  2. RIBAVIRIN [Suspect]
     Indication: HEPATITIS C
     Dates: start: 20100814

REACTIONS (2)
  - DIABETES MELLITUS [None]
  - FATIGUE [None]
